FAERS Safety Report 8002817 (Version 6)
Quarter: 2013Q1

REPORT INFORMATION
  Report Type: Spontaneous
  Country: US (occurrence: US)
  Receive Date: 20110622
  Receipt Date: 20130304
  Transmission Date: 20140127
  Serious: Yes (Hospitalization, Other)
  Sender: FDA-Public Use
  Company Number: PHHY2011US52147

PATIENT
  Age: 34 Year
  Sex: Male
  Weight: 133.79 kg

DRUGS (3)
  1. GILENYA [Suspect]
     Indication: MULTIPLE SCLEROSIS
     Dosage: 0.5 MG, QD
     Route: 048
     Dates: start: 20110330
  2. AVONEX [Suspect]
  3. BACLOFEN [Concomitant]
     Dosage: UNK UKN, UNK

REACTIONS (19)
  - Face oedema [Recovering/Resolving]
  - Sepsis [Recovering/Resolving]
  - Periorbital cellulitis [Unknown]
  - Abscess oral [Recovering/Resolving]
  - Tooth infection [Recovering/Resolving]
  - Tooth abscess [Recovering/Resolving]
  - Uhthoff^s phenomenon [Unknown]
  - Facial asymmetry [Recovering/Resolving]
  - Hypoaesthesia [Recovering/Resolving]
  - Sensory disturbance [Recovering/Resolving]
  - Gait disturbance [Recovering/Resolving]
  - Muscular weakness [Unknown]
  - Musculoskeletal stiffness [Recovering/Resolving]
  - Disturbance in attention [Recovering/Resolving]
  - Joint dislocation [Recovered/Resolved]
  - Fall [Recovering/Resolving]
  - Pain in jaw [Unknown]
  - Headache [Recovering/Resolving]
  - Multiple sclerosis relapse [Unknown]
